FAERS Safety Report 5301552-X (Version None)
Quarter: 2007Q2

REPORT INFORMATION
  Report Type: 
  Country: None (occurrence: None)
  Receive Date: 20070412
  Receipt Date: 20070328
  Transmission Date: 20071010
  Serious: Yes (Other)
  Sender: FDA-Public Use
  Company Number: PHNU2007DE01180

PATIENT
  Age: 67 Year
  Sex: Female

DRUGS (4)
  1. CORANGIN RETARD (ISOSORBIDE MONONITRATE) SLOW RELEASE TABLET, 60MG [Suspect]
     Indication: MYOCARDIAL INFARCTION
     Dosage: 1DF, PRN, ORAL
     Route: 048
     Dates: start: 19960101, end: 20070301
  2. BISOHEXAL (NGX)(BISOPROLOL) FILM-COATED TABLET [Suspect]
     Indication: HYPERTENSION
  3. PLAVIX [Suspect]
     Indication: STENT PLACEMENT
     Dates: end: 20070301
  4. ATACAND [Suspect]
     Indication: HYPERTENSION
     Dates: end: 20070301

REACTIONS (9)
  - ANGINA PECTORIS [None]
  - BLOOD CHOLESTEROL INCREASED [None]
  - CIRCULATORY COLLAPSE [None]
  - DRUG INTOLERANCE [None]
  - HEADACHE [None]
  - MYOCARDIAL INFARCTION [None]
  - NAUSEA [None]
  - ORTHOSTATIC HYPOTENSION [None]
  - RASH [None]
